FAERS Safety Report 5895231-8 (Version None)
Quarter: 2008Q3

REPORT INFORMATION
  Report Type: 
  Country: None (occurrence: None)
  Receive Date: 20080924
  Receipt Date: 20080916
  Transmission Date: 20090109
  Serious: Yes (Other)
  Sender: FDA-Public Use
  Company Number: A0748871A

PATIENT
  Age: 28 Year
  Sex: Female

DRUGS (3)
  1. RETROVIR [Suspect]
     Indication: VIRAL INFECTION
     Dosage: 600MG PER DAY
     Route: 048
     Dates: start: 20080220
  2. TRUVADA [Suspect]
     Indication: VIRAL INFECTION
     Route: 048
  3. KALETRA [Suspect]
     Indication: VIRAL INFECTION
     Route: 048

REACTIONS (2)
  - DRUG EXPOSURE DURING PREGNANCY [None]
  - STILLBIRTH [None]
